FAERS Safety Report 6341988-1 (Version None)
Quarter: 2009Q3

REPORT INFORMATION
  Report Type: 
  Country: None (occurrence: None)
  Receive Date: 20090904
  Receipt Date: 20090827
  Transmission Date: 20100115
  Serious: Yes (Hospitalization, Disabling, Other)
  Sender: FDA-Public Use
  Company Number: GB-AMGEN-US358753

PATIENT
  Sex: Female
  Weight: 61.8 kg

DRUGS (14)
  1. ENBREL [Suspect]
     Indication: TUBERCULOSIS
     Route: 058
     Dates: start: 20090406, end: 20090501
  2. SULFASALAZINE [Suspect]
     Indication: DRUG USE FOR UNKNOWN INDICATION
     Dosage: UNKNOWN
  3. METHOTREXATE [Suspect]
     Indication: DRUG USE FOR UNKNOWN INDICATION
     Dosage: UNKNOWN
  4. OMEPRAZOLE [Concomitant]
     Indication: DYSPEPSIA
     Route: 048
  5. RAMIPRIL [Concomitant]
     Indication: HYPERTENSION
     Route: 048
  6. CHOLESTYRAMINE RESIN [Concomitant]
     Indication: HYPERCHOLESTEROLAEMIA
     Route: 048
  7. PARACETAMOL [Concomitant]
     Indication: PAIN
     Route: 048
  8. RIFATER [Concomitant]
     Indication: TUBERCULOSIS
     Route: 048
     Dates: start: 20090606, end: 20090626
  9. PYRIDOXINE [Concomitant]
     Indication: TUBERCULOSIS
     Dates: start: 20090606, end: 20090626
  10. ETHAMBUTOL [Concomitant]
     Indication: TUBERCULOSIS
     Route: 048
     Dates: start: 20090606, end: 20090626
  11. MST [Concomitant]
     Indication: PAIN
     Route: 048
  12. COTRIM [Concomitant]
     Indication: WHIPPLE'S DISEASE
     Dosage: UNKNOWN
     Dates: start: 20090713
  13. FLUOXETINE [Concomitant]
     Indication: DEPRESSION
     Route: 048
  14. CODEINE [Concomitant]
     Indication: PAIN
     Route: 048

REACTIONS (6)
  - ANAEMIA [None]
  - BLOOD ALBUMIN DECREASED [None]
  - DIARRHOEA [None]
  - LYMPHADENOPATHY [None]
  - PLEURAL EFFUSION [None]
  - WEIGHT DECREASED [None]
